FAERS Safety Report 9777634 (Version 2)
Quarter: 2014Q1

REPORT INFORMATION
  Report Type: Report from Study
  Country: PT (occurrence: PT)
  Receive Date: 20131223
  Receipt Date: 20140314
  Transmission Date: 20141002
  Serious: Yes (Life-Threatening, Hospitalization)
  Sender: FDA-Public Use
  Company Number: PT-ROCHE-1320648

PATIENT
  Age: 43 Year
  Sex: Male

DRUGS (4)
  1. PEG-INTERFERON ALFA 2A [Suspect]
     Indication: CHRONIC HEPATITIS C
     Route: 065
     Dates: start: 20121026
  2. RIBAVIRIN [Suspect]
     Indication: CHRONIC HEPATITIS C
     Route: 065
     Dates: start: 20121026
  3. BLINDED TMC435 [Suspect]
     Indication: CHRONIC HEPATITIS C
     Route: 065
     Dates: start: 20121026
  4. BLINDED TELAPREVIR [Suspect]
     Indication: CHRONIC HEPATITIS C
     Route: 065

REACTIONS (1)
  - Toxicity to various agents [Recovered/Resolved]
